FAERS Safety Report 13826671 (Version 1)
Quarter: 2017Q3

REPORT INFORMATION
  Report Type: Spontaneous
  Country: US (occurrence: US)
  Receive Date: 20170802
  Receipt Date: 20170802
  Transmission Date: 20171127
  Serious: No
  Sender: FDA-Public Use
  Company Number: US-ROCHE-616046

PATIENT
  Age: 85 Year
  Sex: Female

DRUGS (6)
  1. PREDNISONE. [Concomitant]
     Active Substance: PREDNISONE
     Route: 065
  2. ANTIBIOTIC NOS [Concomitant]
     Active Substance: UNSPECIFIED INGREDIENT
     Route: 065
  3. BONIVA [Suspect]
     Active Substance: IBANDRONATE SODIUM
     Indication: OSTEOPOROSIS
     Route: 048
  4. BONIVA [Suspect]
     Active Substance: IBANDRONATE SODIUM
     Route: 048
  5. BONIVA [Suspect]
     Active Substance: IBANDRONATE SODIUM
     Dosage: FREQUENCY: EVERY OTHER MONTH
     Route: 048
  6. AVELOX [Concomitant]
     Active Substance: MOXIFLOXACIN HYDROCHLORIDE
     Route: 065

REACTIONS (3)
  - Cough [Unknown]
  - Pain [Unknown]
  - Pneumonia [Unknown]
